FAERS Safety Report 7980986-9 (Version None)
Quarter: 2011Q4

REPORT INFORMATION
  Report Type: 
  Country: None (occurrence: None)
  Receive Date: 20111215
  Receipt Date: 20111206
  Transmission Date: 20120403
  Serious: No
  Sender: FDA-Public Use
  Company Number: US-BIOGENIDEC-2011BI020980

PATIENT
  Sex: Female

DRUGS (4)
  1. ANTIBIOTIC (NOS) [Concomitant]
     Indication: VAGINAL INFECTION
  2. ANTIBIOTIC (NOS) [Concomitant]
     Indication: URINARY TRACT INFECTION
  3. TYSABRI [Suspect]
     Indication: MULTIPLE SCLEROSIS
     Route: 042
     Dates: start: 20090304
  4. ANTIBIOTIC (NOS) [Concomitant]
     Indication: INFECTION

REACTIONS (3)
  - URINARY TRACT INFECTION [None]
  - VAGINAL INFECTION [None]
  - INFECTION [None]
